FAERS Safety Report 19133249 (Version 1)
Quarter: 2021Q2

REPORT INFORMATION
  Report Type: Spontaneous
  Country: US (occurrence: US)
  Receive Date: 20210413
  Receipt Date: 20210413
  Transmission Date: 20210717
  Serious: Yes (Death)
  Sender: FDA-Public Use
  Company Number: None

PATIENT
  Sex: Male

DRUGS (6)
  1. ERIVEDGE [Suspect]
     Active Substance: VISMODEGIB
     Indication: BASAL CELL CARCINOMA
     Route: 048
     Dates: start: 20210205
  2. ALLOPURINOL. [Suspect]
     Active Substance: ALLOPURINOL
  3. VITAMIN C [Suspect]
     Active Substance: ASCORBIC ACID
  4. TRIAMR/HCTZ [Concomitant]
  5. VITAMIN D3 [Suspect]
     Active Substance: CHOLECALCIFEROL
  6. ASPORON [Concomitant]

REACTIONS (1)
  - Death [None]
